FAERS Safety Report 21787323 (Version 1)
Quarter: 2022Q4

REPORT INFORMATION
  Report Type: Spontaneous
  Country: IT (occurrence: IT)
  Receive Date: 20221228
  Receipt Date: 20221228
  Transmission Date: 20230113
  Serious: Yes (Hospitalization)
  Sender: FDA-Public Use
  Company Number: None

PATIENT
  Age: 82 Year
  Sex: Male
  Weight: 72 kg

DRUGS (17)
  1. RISPERDAL [Suspect]
     Active Substance: RISPERIDONE
     Indication: Product used for unknown indication
     Dosage: RISPERDAL 1 MG TAB: 1/2 TAB/DAILY
     Route: 065
     Dates: start: 20220728, end: 20220802
  2. SEROQUEL [Suspect]
     Active Substance: QUETIAPINE FUMARATE
     Indication: Irregular sleep wake rhythm disorder
     Route: 065
     Dates: start: 20220301, end: 20220727
  3. SEROQUEL [Suspect]
     Active Substance: QUETIAPINE FUMARATE
     Indication: Psychomotor hyperactivity
  4. SEROQUEL [Suspect]
     Active Substance: QUETIAPINE FUMARATE
     Indication: Fear
  5. AVODART [Concomitant]
     Active Substance: DUTASTERIDE
  6. PLAVIX [Concomitant]
     Active Substance: CLOPIDOGREL BISULFATE
  7. EZETIMIBE\SIMVASTATIN [Concomitant]
     Active Substance: EZETIMIBE\SIMVASTATIN
  8. LANSOPRAZOLE [Concomitant]
     Active Substance: LANSOPRAZOLE
  9. PRAMIPEXOLE [Concomitant]
     Active Substance: PRAMIPEXOLE
  10. DEURSIL [Concomitant]
     Active Substance: URSODIOL
  11. AMIODARONE [Concomitant]
     Active Substance: AMIODARONE
  12. ASPIRIN [Concomitant]
     Active Substance: ASPIRIN
  13. KAYEXALATE [Concomitant]
     Active Substance: SODIUM POLYSTYRENE SULFONATE
  14. LASIX [Concomitant]
     Active Substance: FUROSEMIDE
  15. LERCANIDIPINE HYDROCHLORIDE [Concomitant]
     Active Substance: LERCANIDIPINE HYDROCHLORIDE
  16. RIFAXIMIN [Concomitant]
     Active Substance: RIFAXIMIN
  17. SILODOSIN [Concomitant]
     Active Substance: SILODOSIN

REACTIONS (5)
  - Depressed level of consciousness [Recovering/Resolving]
  - Hypersomnia [Recovering/Resolving]
  - Catatonia [Recovering/Resolving]
  - Suck-swallow breathing coordination disturbance [Recovering/Resolving]
  - Off label use [Recovering/Resolving]

NARRATIVE: CASE EVENT DATE: 20220727
